FAERS Safety Report 9134696 (Version 1)
Quarter: 2013Q1

REPORT INFORMATION
  Report Type: Spontaneous
  Country: US (occurrence: None)
  Receive Date: 20130205
  Receipt Date: 20130205
  Transmission Date: 20140127
  Serious: Yes (Hospitalization)
  Sender: FDA-Public Use
  Company Number: 2013-0138

PATIENT
  Age: 74 Year
  Sex: Female

DRUGS (18)
  1. KYPROLIS (CARFILZOMIB)(INJECTION FOR INFUSION)(CARFILZOMIB) [Suspect]
     Indication: PLASMA CELL MYELOMA
     Route: 042
     Dates: start: 20121203
  2. PREDNISONE (PREDNISONE) [Concomitant]
  3. LEVOTHYROXINE (LEVOTHYROXINE) [Concomitant]
  4. HCTZ (HYDROCHLOROTHIAZIDE [Concomitant]
  5. METOPROLOL (METOPROLOL) [Concomitant]
  6. POTASSIUM (POTASSIUM [Concomitant]
  7. PRILOSEC [Concomitant]
  8. VENLAFAXINE (VENLAFAXINE) [Concomitant]
  9. VALTREX (VALACICLOVIR HYDROCHLORIDE) [Concomitant]
  10. AMITRIPTYLINE (AMITRIPTYLINE) [Concomitant]
  11. AMBIEN (ZOLPIDEM TARTRATE) [Concomitant]
  12. VITAMIN B6 (PYRIDOXINE HYDROCHLORIDE) [Concomitant]
  13. VITAMIN B12 CYANOCOBALAMIN) [Concomitant]
  14. MVI (VITAMINS NOS) [Concomitant]
  15. FOLIC ACID (FOLIC ACID) [Concomitant]
  16. CITRICAL (CALCIUM) [Concomitant]
  17. FAMOTIDINE (FAMOTIDINE) [Concomitant]
  18. MAGNESIUM (MAGNESIUM) [Concomitant]

REACTIONS (6)
  - Dyspnoea [None]
  - Hypoxia [None]
  - Urinary tract infection enterococcal [None]
  - Asthenia [None]
  - Plasma cell myeloma [None]
  - Pyrexia [None]
